FAERS Safety Report 4909172-3 (Version None)
Quarter: 2006Q1

REPORT INFORMATION
  Report Type: 
  Country: None (occurrence: None)
  Receive Date: 20060209
  Receipt Date: 20060209
  Transmission Date: 20060701
  Serious: Yes (Life-Threatening)
  Sender: FDA-Public Use
  Company Number: None

PATIENT
  Age: 31 Year
  Sex: Female

DRUGS (5)
  1. BENZOCAINE 20 % BEUTLICH [Suspect]
     Indication: ECHOCARDIOGRAM
     Dosage: 3 SPRAYS ONCE OROPHARINGEAL
     Route: 049
     Dates: start: 20041018, end: 20041018
  2. METOPROLOL [Concomitant]
  3. PANTOPRAZOLE [Concomitant]
  4. PROMETHAZINE [Concomitant]
  5. GUAIFENESIS WITH CODEINE [Concomitant]

REACTIONS (1)
  - METHAEMOGLOBINAEMIA [None]
